FAERS Safety Report 15048130 (Version 1)
Quarter: 2018Q2

REPORT INFORMATION
  Report Type: Spontaneous
  Country: US (occurrence: US)
  Receive Date: 20180622
  Receipt Date: 20180622
  Transmission Date: 20180711
  Serious: No
  Sender: FDA-Public Use
  Company Number: US-B.I. PHARMACEUTICALS,INC./RIDGEFIELD-2018-BI-031528

PATIENT
  Sex: Male

DRUGS (5)
  1. ASPIRIN. [Concomitant]
     Active Substance: ASPIRIN
     Indication: ARTHRITIS
  2. SPIRIVA RESPIMAT [Suspect]
     Active Substance: TIOTROPIUM BROMIDE
     Indication: CHRONIC OBSTRUCTIVE PULMONARY DISEASE
     Dosage: 2 PUFFS ONCE PER DAY; STRENGTH: 2.5 MCG; FORMULATION: INHALATION SPRAY ACTION(S) TAKEN: NOT CHANGED
     Route: 055
     Dates: start: 2018
  3. SPIRIVA [Suspect]
     Active Substance: TIOTROPIUM BROMIDE MONOHYDRATE
     Indication: CHRONIC OBSTRUCTIVE PULMONARY DISEASE
     Dosage: 2 PUFFS FROM ONE CAPSULE DAILY;  STRENGTH: 18 MCG; FOR: CAPSULEACTION(S) TAKEN: DRUG WITHDRAWN
     Route: 055
     Dates: start: 2008, end: 2018
  4. ASPIRIN. [Concomitant]
     Active Substance: ASPIRIN
     Indication: ROUTINE HEALTH MAINTENANCE
     Dosage: 1 TABLET TWICE PER DAY;  FORM STRENGTH: 325MG; FORMULATION: TABLET
     Route: 048
  5. ANDROGEL [Concomitant]
     Active Substance: TESTOSTERONE
     Indication: METABOLIC SYNDROME
     Dosage: 1 APPLICATOIN TWICE WEEKLY;
     Route: 061

REACTIONS (1)
  - Mental impairment [Not Recovered/Not Resolved]
